FAERS Safety Report 5598356-X (Version None)
Quarter: 2008Q1

REPORT INFORMATION
  Report Type: 
  Country: None (occurrence: None)
  Receive Date: 20080122
  Receipt Date: 20080111
  Transmission Date: 20080703
  Serious: Yes (Hospitalization)
  Sender: FDA-Public Use
  Company Number: CN-AVENTIS-200810045GDDC

PATIENT
  Age: 26 Year
  Sex: Female

DRUGS (2)
  1. AMARYL [Suspect]
     Indication: SUICIDE ATTEMPT
     Route: 048
     Dates: start: 20080102, end: 20080102
  2. METFORMIN HCL [Suspect]
     Dosage: DOSE QUANTITY: 60
     Route: 048
     Dates: start: 20080102, end: 20080102

REACTIONS (7)
  - COMA [None]
  - DIZZINESS [None]
  - INTENTIONAL OVERDOSE [None]
  - LACTIC ACIDOSIS [None]
  - NAUSEA [None]
  - RENAL FAILURE [None]
  - VOMITING [None]
